FAERS Safety Report 11030725 (Version 1)
Quarter: 2015Q2

REPORT INFORMATION
  Report Type: Spontaneous
  Country: None (occurrence: None)
  Receive Date: 20150414
  Receipt Date: 20150414
  Transmission Date: 20150821
  Serious: Yes (Hospitalization)
  Sender: FDA-Public Use
  Company Number: None

PATIENT
  Age: 82 Year
  Sex: Male

DRUGS (1)
  1. PRADAXA [Suspect]
     Active Substance: DABIGATRAN ETEXILATE MESYLATE
     Indication: ATRIAL FIBRILLATION
     Dosage: 1 PILL, BID, ORAL
     Route: 048

REACTIONS (5)
  - Prothrombin time abnormal [None]
  - Coagulopathy [None]
  - Anaemia [None]
  - Activated partial thromboplastin time abnormal [None]
  - Rectal haemorrhage [None]

NARRATIVE: CASE EVENT DATE: 20150313
